FAERS Safety Report 9828107 (Version 1)
Quarter: 2014Q1

REPORT INFORMATION
  Report Type: Spontaneous
  Country: US (occurrence: US)
  Receive Date: 20140117
  Receipt Date: 20140117
  Transmission Date: 20141002
  Serious: No
  Sender: FDA-Public Use
  Company Number: US-GILEAD-2010-0032714

PATIENT
  Sex: Male

DRUGS (7)
  1. ATRIPLA [Suspect]
     Dates: start: 20100903
  2. SUSTIVA [Suspect]
  3. EPSICON [Concomitant]
  4. MEDICAL MARIJUANA [Concomitant]
  5. DEPAKOTE [Concomitant]
  6. LYRICA [Concomitant]
  7. VSL#3 [Concomitant]

REACTIONS (5)
  - Dysarthria [Unknown]
  - Anxiety [Unknown]
  - Tremor [Unknown]
  - Gait disturbance [Unknown]
  - Tremor [Unknown]
